FAERS Safety Report 4852386-1 (Version None)
Quarter: 2005Q4

REPORT INFORMATION
  Report Type: 
  Country: None (occurrence: None)
  Receive Date: 20051213
  Receipt Date: 20051206
  Transmission Date: 20060501
  Serious: Yes (Disabling, Other)
  Sender: FDA-Public Use
  Company Number: US-JNJFOC-20051201910

PATIENT
  Age: 66 Year
  Sex: Male

DRUGS (8)
  1. LEVAQUIN [Suspect]
  2. LEVAQUIN [Suspect]
     Indication: DRUG USE FOR UNKNOWN INDICATION
  3. MAXAQUIN [Suspect]
     Indication: PROSTATIC DISORDER
  4. CIPROFLOXACIN [Suspect]
  5. CIPROFLOXACIN [Suspect]
  6. CIPROFLOXACIN [Suspect]
  7. CIPROFLOXACIN [Suspect]
     Indication: DRUG USE FOR UNKNOWN INDICATION
  8. TEQUIN [Suspect]
     Indication: DRUG USE FOR UNKNOWN INDICATION

REACTIONS (8)
  - AMNESIA [None]
  - ARRHYTHMIA [None]
  - ARTHRALGIA [None]
  - BACK PAIN [None]
  - EYE PAIN [None]
  - PAIN IN JAW [None]
  - TENDON RUPTURE [None]
  - VISUAL ACUITY REDUCED [None]
